FAERS Safety Report 5573770-7 (Version None)
Quarter: 2007Q4

REPORT INFORMATION
  Report Type: 
  Country: None (occurrence: None)
  Receive Date: 20071226
  Receipt Date: 20071221
  Transmission Date: 20080405
  Serious: Yes (Death)
  Sender: FDA-Public Use
  Company Number: IT-ASTRAZENECA-2007SE06752

PATIENT
  Age: 30557 Day
  Sex: Female

DRUGS (2)
  1. SEROQUEL [Suspect]
     Indication: DEMENTIA ALZHEIMER'S TYPE
     Route: 048
     Dates: start: 20050101, end: 20070923
  2. RIVOTRIL [Concomitant]
     Route: 048

REACTIONS (2)
  - CHRONIC MYELOMONOCYTIC LEUKAEMIA [None]
  - JAUNDICE CHOLESTATIC [None]
